FAERS Safety Report 14730500 (Version 4)
Quarter: 2018Q2

REPORT INFORMATION
  Report Type: Report from Study
  Country: BR (occurrence: BR)
  Receive Date: 20180406
  Receipt Date: 20180511
  Transmission Date: 20180711
  Serious: Yes (Other)
  Sender: FDA-Public Use
  Company Number: PHHY2017BR139587

PATIENT
  Sex: Female
  Weight: 69 kg

DRUGS (6)
  1. EXELON [Suspect]
     Active Substance: RIVASTIGMINE TARTRATE
     Indication: PRODUCT USED FOR UNKNOWN INDICATION
     Dosage: UNK
     Route: 065
     Dates: start: 201711, end: 201711
  2. DONEPEZIL. [Suspect]
     Active Substance: DONEPEZIL
     Indication: PRODUCT USED FOR UNKNOWN INDICATION
     Dosage: 1 DF, QD
     Route: 065
  3. EXELON PATCH [Suspect]
     Active Substance: RIVASTIGMINE
     Indication: VASCULAR DEMENTIA
     Dosage: 4.6 MG, PATCH (5 CM2), QD
     Route: 062
     Dates: start: 201703
  4. EXELON PATCH [Suspect]
     Active Substance: RIVASTIGMINE
     Dosage: 4.6 MG, PATCH (5 CM2), QD
     Route: 062
     Dates: start: 201801, end: 201803
  5. EXELON PATCH [Suspect]
     Active Substance: RIVASTIGMINE
     Indication: MEMORY IMPAIRMENT
     Dosage: 9.5 MG, PATCH (10 CM2), QD
     Route: 062
  6. MEMANTINE. [Suspect]
     Active Substance: MEMANTINE
     Indication: PRODUCT USED FOR UNKNOWN INDICATION
     Route: 065

REACTIONS (18)
  - Dementia Alzheimer^s type [Unknown]
  - Drug administration error [Unknown]
  - Incorrect drug administration duration [Unknown]
  - Drug ineffective [Unknown]
  - Vomiting [Unknown]
  - Drug intolerance [Unknown]
  - Application site streaking [Unknown]
  - Application site irritation [Unknown]
  - Application site pruritus [Unknown]
  - Lack of application site rotation [Unknown]
  - Product adhesion issue [Unknown]
  - Apathy [Unknown]
  - Scratch [Unknown]
  - Application site hypersensitivity [Unknown]
  - Product use in unapproved indication [Unknown]
  - Fatigue [Recovering/Resolving]
  - Somnolence [Recovering/Resolving]
  - Retching [Unknown]
